FAERS Safety Report 26109805 (Version 2)
Quarter: 2025Q4

REPORT INFORMATION
  Report Type: Spontaneous
  Country: EU (occurrence: EU)
  Receive Date: 20251201
  Receipt Date: 20251212
  Transmission Date: 20260117
  Serious: Yes (Other)
  Sender: BAYER HEALTHCARE PHARMACEUTICALS INC.
  Company Number: EU-BAYER-2025A156756

PATIENT
  Age: 64 Year
  Sex: Male
  Weight: 118 kg

DRUGS (7)
  1. NUBEQA [Suspect]
     Active Substance: DAROLUTAMIDE
     Indication: Hormone-dependent prostate cancer
     Dosage: 600 MG, BID
     Route: 048
     Dates: start: 202405
  2. DOCETAXEL [Suspect]
     Active Substance: DOCETAXEL
     Dosage: 75 MG/M?
     Dates: start: 202406
  3. DOCETAXEL [Suspect]
     Active Substance: DOCETAXEL
     Dosage: SECOND CYCLE OF DOCETAXEL
     Dates: start: 202407
  4. DOCETAXEL [Suspect]
     Active Substance: DOCETAXEL
     Dosage: UNK
  5. DOCETAXEL [Suspect]
     Active Substance: DOCETAXEL
     Dosage: UNK
  6. DOCETAXEL [Suspect]
     Active Substance: DOCETAXEL
     Dosage: FIFTH CYCLE OF DOCETAXEL
     Dates: end: 202410
  7. GONADORELIN [Suspect]
     Active Substance: GONADORELIN
     Dosage: UNK
     Dates: start: 202406

REACTIONS (6)
  - Capillary leak syndrome [None]
  - Hot flush [None]
  - Anaemia [None]
  - Paronychia [None]
  - Fatigue [None]
  - Nausea [None]
